FAERS Safety Report 11228498 (Version 1)
Quarter: 2015Q2

REPORT INFORMATION
  Report Type: Spontaneous
  Country: US (occurrence: US)
  Receive Date: 20150630
  Receipt Date: 20150630
  Transmission Date: 20150821
  Serious: Yes (Other)
  Sender: FDA-Public Use
  Company Number: US-BAYER-2015-366784

PATIENT
  Sex: Female

DRUGS (4)
  1. NEOMYCIN [NEOMYCIN] [Suspect]
     Active Substance: NEOMYCIN
  2. CHLORAMPHENICOL [CHLORAMPHENICOL] [Suspect]
     Active Substance: CHLORAMPHENICOL
  3. AVELOX [Suspect]
     Active Substance: MOXIFLOXACIN HYDROCHLORIDE
     Indication: SINUSITIS
     Dosage: 400 MG, QD
     Route: 048
  4. ZITHROMAX [Suspect]
     Active Substance: AZITHROMYCIN DIHYDRATE

REACTIONS (3)
  - Eye pruritus [Recovered/Resolved]
  - Rash [Recovered/Resolved]
  - Eyelid oedema [Recovered/Resolved]
